FAERS Safety Report 9885105 (Version 6)
Quarter: 2014Q2

REPORT INFORMATION
  Report Type: Spontaneous
  Country: US (occurrence: US)
  Receive Date: 20140210
  Receipt Date: 20140512
  Transmission Date: 20141212
  Serious: Yes (Hospitalization, Other)
  Sender: FDA-Public Use
  Company Number: US-BAYER-2014-017568

PATIENT
  Age: 62 Year
  Sex: Female
  Weight: 145 kg

DRUGS (9)
  1. ALEVE GELCAPS [Suspect]
     Indication: HEADACHE
     Dosage: 1 DF, BID, FOR TEN DAYS
     Route: 048
     Dates: start: 201311, end: 201311
  2. ALEVE GELCAPS [Suspect]
     Indication: ARTHRITIS
  3. LANTUS [Concomitant]
     Indication: DIABETES MELLITUS
     Dosage: 50 MG, QD
  4. GLYBURIDE [Concomitant]
  5. GLIMEPIRIDE [Concomitant]
     Dosage: 2 DF, QD
     Dates: start: 2005
  6. ONGLYZA [Concomitant]
     Dosage: 2 DF, QD
     Dates: start: 2008
  7. JANUVIA [Concomitant]
     Dosage: 2 DF, QD
     Dates: start: 2009
  8. LIPITOR [Concomitant]
     Indication: BLOOD CHOLESTEROL
     Dosage: 2 DF, QD
     Dates: start: 2009
  9. ENALAPRIL [Concomitant]
     Indication: BLOOD PRESSURE ABNORMAL
     Dosage: 2 DF, QD
     Dates: start: 2009

REACTIONS (11)
  - Renal impairment [Not Recovered/Not Resolved]
  - Subcutaneous abscess [None]
  - Hallucination [None]
  - Mental impairment [None]
  - Rash [Not Recovered/Not Resolved]
  - Urinary incontinence [Not Recovered/Not Resolved]
  - Pruritus [None]
  - Back pain [Not Recovered/Not Resolved]
  - Decreased appetite [Not Recovered/Not Resolved]
  - Staphylococcal infection [Recovered/Resolved]
  - Mental impairment [None]
